FAERS Safety Report 5674551-6 (Version None)
Quarter: 2008Q1

REPORT INFORMATION
  Report Type: 
  Country: None (occurrence: None)
  Receive Date: 20080319
  Receipt Date: 20080319
  Transmission Date: 20080703
  Serious: Yes (Life-Threatening, Hospitalization, Other)
  Sender: FDA-Public Use
  Company Number: None

PATIENT
  Age: 64 Year
  Sex: Male
  Weight: 97.5234 kg

DRUGS (1)
  1. ALKA SELTZER REGULAR STRENGTH BAYER [Suspect]
     Indication: ABDOMINAL DISCOMFORT
     Dosage: 2 TABLETS X 1 PO  SINGLE DOSE
     Route: 048
     Dates: start: 20080311, end: 20080311

REACTIONS (5)
  - DYSPNOEA [None]
  - OEDEMA PERIPHERAL [None]
  - PHARMACEUTICAL PRODUCT COMPLAINT [None]
  - RALES [None]
  - RHONCHI [None]
